FAERS Safety Report 18627247 (Version 2)
Quarter: 2021Q1

REPORT INFORMATION
  Report Type: Spontaneous
  Country: DE (occurrence: DE)
  Receive Date: 20201217
  Receipt Date: 20210108
  Transmission Date: 20210419
  Serious: Yes (Hospitalization, Other)
  Sender: FDA-Public Use
  Company Number: DE-GLAXOSMITHKLINE-DE2020246950

PATIENT
  Age: 15 Year
  Sex: Female
  Weight: 56 kg

DRUGS (2)
  1. DICLOFENAC [Suspect]
     Active Substance: DICLOFENAC
     Indication: SUICIDAL IDEATION
     Dosage: 50 MG, QD
     Route: 048
     Dates: start: 20200621, end: 20200621
  2. METFORMIN [Suspect]
     Active Substance: METFORMIN HYDROCHLORIDE
     Indication: SUICIDAL IDEATION
     Dosage: 800 MG, QD
     Route: 048
     Dates: start: 20200621, end: 20200621

REACTIONS (3)
  - Intentional overdose [Unknown]
  - Hypoglycaemia [Unknown]
  - Toxicity to various agents [Unknown]

NARRATIVE: CASE EVENT DATE: 20200621
